FAERS Safety Report 10158227 (Version 2)
Quarter: 2014Q3

REPORT INFORMATION
  Report Type: Spontaneous
  Country: US (occurrence: US)
  Receive Date: 20140507
  Receipt Date: 20140807
  Transmission Date: 20150326
  Serious: No
  Sender: FDA-Public Use
  Company Number: US-TEVA-479360USA

PATIENT
  Age: 56 Year
  Sex: Female
  Weight: 69.92 kg

DRUGS (7)
  1. BACLOFEN. [Concomitant]
     Active Substance: BACLOFEN
     Dosage: 1 TO 2 TABS
     Dates: start: 20140325
  2. COPAXONE [Suspect]
     Active Substance: GLATIRAMER ACETATE
     Indication: MULTIPLE SCLEROSIS
     Dates: start: 20140208
  3. COPAXONE [Suspect]
     Active Substance: GLATIRAMER ACETATE
     Dates: start: 201404, end: 20140428
  4. LEVOTHYROXINE [Concomitant]
     Active Substance: LEVOTHYROXINE
     Indication: HYPOTHYROIDISM
     Dosage: 100 MICROGRAM DAILY;
     Route: 048
  5. NEURONTIN [Concomitant]
     Active Substance: GABAPENTIN
     Indication: PAIN IN EXTREMITY
     Dosage: 300 MG AND 100 MG
  6. MAGNESIUM [Concomitant]
     Active Substance: MAGNESIUM
     Indication: NUTRITIONAL SUPPLEMENTATION
  7. VITAMIN D3 [Concomitant]
     Active Substance: CHOLECALCIFEROL
     Indication: NUTRITIONAL SUPPLEMENTATION

REACTIONS (23)
  - Neuralgia [Unknown]
  - Joint stiffness [Unknown]
  - Injection site pain [Unknown]
  - Arthralgia [Unknown]
  - Injection site reaction [Unknown]
  - Pain [Unknown]
  - Pain in extremity [Not Recovered/Not Resolved]
  - Injection site pruritus [Unknown]
  - Arthralgia [Unknown]
  - Abdominal distension [Unknown]
  - Arthralgia [Unknown]
  - Blepharospasm [Unknown]
  - Pain [Unknown]
  - Pruritus [Unknown]
  - Paraesthesia [Unknown]
  - Headache [Unknown]
  - Vision blurred [Unknown]
  - Musculoskeletal pain [Unknown]
  - Drug hypersensitivity [Unknown]
  - Fatigue [Unknown]
  - Burning sensation [Unknown]
  - Injection site mass [Unknown]
  - Limb discomfort [Unknown]

NARRATIVE: CASE EVENT DATE: 2014
